FAERS Safety Report 16910651 (Version 1)
Quarter: 2019Q4

REPORT INFORMATION
  Report Type: Spontaneous
  Country: FR (occurrence: FR)
  Receive Date: 20191012
  Receipt Date: 20191012
  Transmission Date: 20200122
  Serious: Yes (Hospitalization)
  Sender: FDA-Public Use
  Company Number: FR-ROCHE-2433089

PATIENT
  Age: 73 Year
  Sex: Female
  Weight: 70 kg

DRUGS (2)
  1. ROACTEMRA [Suspect]
     Active Substance: TOCILIZUMAB
     Indication: TEMPORAL ARTERITIS
     Dosage: MOST RECENT DOSE ON 27/AUG/2019.
     Route: 058
     Dates: start: 20190708
  2. CORTANCYL [Suspect]
     Active Substance: PREDNISONE
     Indication: TEMPORAL ARTERITIS
     Route: 048
     Dates: start: 20170601

REACTIONS (1)
  - Pancreatitis acute [Recovering/Resolving]

NARRATIVE: CASE EVENT DATE: 20190831
